FAERS Safety Report 5693862-1 (Version None)
Quarter: 2008Q2

REPORT INFORMATION
  Report Type: 
  Country: None (occurrence: None)
  Receive Date: 20080403
  Receipt Date: 20080327
  Transmission Date: 20081010
  Serious: Yes (Hospitalization)
  Sender: FDA-Public Use
  Company Number: FR-PFIZER INC-2008027937

PATIENT
  Sex: Female

DRUGS (13)
  1. XANAX [Suspect]
     Indication: ANXIETY
     Route: 048
     Dates: start: 20070801, end: 20070905
  2. ATARAX [Suspect]
     Indication: ANXIETY
     Route: 048
     Dates: start: 20070803, end: 20070905
  3. IMOVANE [Suspect]
     Route: 048
     Dates: start: 20070801, end: 20070905
  4. EQUANIL [Suspect]
     Indication: ANXIETY
     Route: 048
     Dates: start: 20070828, end: 20070905
  5. TRANXENE [Suspect]
     Indication: ANXIETY
     Route: 042
     Dates: start: 20070831, end: 20070905
  6. ATHYMIL [Suspect]
     Route: 048
     Dates: start: 20070831, end: 20070905
  7. PREVISCAN [Concomitant]
  8. LAMALINE [Concomitant]
     Route: 048
  9. LEVOCETIRIZINE DIHYDROCHLORIDE [Concomitant]
  10. LASILIX [Concomitant]
  11. ALDACTONE [Concomitant]
  12. OGAST [Concomitant]
  13. CIBACALCINE [Concomitant]

REACTIONS (1)
  - COMA [None]
